APPROVED DRUG PRODUCT: ZONISAMIDE
Active Ingredient: ZONISAMIDE
Strength: 50MG
Dosage Form/Route: CAPSULE;ORAL
Application: A077647 | Product #002
Applicant: PHARMOBEDIENT CONSULTING LLC
Approved: Dec 22, 2005 | RLD: No | RS: No | Type: DISCN